FAERS Safety Report 8314530-3 (Version None)
Quarter: 2012Q2

REPORT INFORMATION
  Report Type: 
  Country: None (occurrence: None)
  Receive Date: 20120426
  Receipt Date: 20120418
  Transmission Date: 20120825
  Serious: Yes (Hospitalization)
  Sender: FDA-Public Use
  Company Number: US-ABBOTT-12P-163-0926944-00

PATIENT
  Sex: Female
  Weight: 41.768 kg

DRUGS (6)
  1. ZEMPLAR [Suspect]
     Dates: start: 20120418
  2. RENAGEL [Concomitant]
     Indication: NEPHROPATHY
  3. ZEMPLAR [Suspect]
     Indication: RENAL FAILURE CHRONIC
     Dates: start: 20120301, end: 20120417
  4. LOPRESSOR [Concomitant]
     Indication: HYPERTENSION
  5. BICITRA [Concomitant]
     Indication: RENAL TUBULAR ACIDOSIS
  6. SYNTHROID [Concomitant]
     Indication: HYPOTHYROIDISM

REACTIONS (2)
  - PERICARDIAL EFFUSION [None]
  - PULMONARY OEDEMA [None]
